FAERS Safety Report 4985958-4 (Version None)
Quarter: 2006Q2

REPORT INFORMATION
  Report Type: 
  Country: None (occurrence: None)
  Receive Date: 20060421
  Receipt Date: 20060412
  Transmission Date: 20061013
  Serious: Yes (Death, Hospitalization)
  Sender: FDA-Public Use
  Company Number: 2006-03-1587

PATIENT
  Age: 42 Year
  Sex: Female

DRUGS (3)
  1. TEMODAL [Suspect]
     Indication: ANAPLASTIC ASTROCYTOMA
     Dosage: 200 MG/M2 ORAL
     Route: 048
     Dates: start: 20060126, end: 20060130
  2. DEPAKENE [Concomitant]
  3. ZOFRAN [Concomitant]

REACTIONS (3)
  - BONE MARROW FAILURE [None]
  - FEBRILE NEUTROPENIA [None]
  - SEPSIS [None]
